FAERS Safety Report 8941671 (Version 1)
Quarter: 2012Q4

REPORT INFORMATION
  Report Type: 
  Country: US (occurrence: US)
  Receive Date: 20121203
  Receipt Date: 20121203
  Transmission Date: 20130627
  Serious: No
  Sender: FDA-Public Use
  Company Number: US-PFIZER INC-2012301229

PATIENT
  Age: 30 Year
  Sex: Female

DRUGS (1)
  1. PRISTIQ [Suspect]
     Indication: MAJOR DEPRESSIVE DISORDER NOS
     Dosage: 50 mg, 1x/day
     Route: 048

REACTIONS (2)
  - Nausea [Unknown]
  - Hyperhidrosis [Unknown]
